FAERS Safety Report 5010252-5 (Version None)
Quarter: 2006Q2

REPORT INFORMATION
  Report Type: 
  Country: None (occurrence: None)
  Receive Date: 20060524
  Receipt Date: 20060515
  Transmission Date: 20061013
  Serious: Yes (Hospitalization)
  Sender: FDA-Public Use
  Company Number: AU-MERCK-0605AUS00153

PATIENT
  Age: 80 Year
  Sex: Female

DRUGS (13)
  1. ZOCOR [Suspect]
     Indication: METABOLIC DISORDER
     Route: 048
     Dates: end: 20060104
  2. CANDESARTAN CILEXETIL [Suspect]
     Indication: ESSENTIAL HYPERTENSION
     Route: 048
     Dates: end: 20060109
  3. METFORMIN HYDROCHLORIDE [Suspect]
     Indication: DIABETES MELLITUS
     Route: 048
     Dates: end: 20060109
  4. PERHEXILINE MALEATE [Suspect]
     Indication: ANGINA PECTORIS
     Route: 048
     Dates: end: 20060109
  5. PERHEXILINE MALEATE [Suspect]
     Indication: HYPERTENSION
     Route: 048
     Dates: end: 20060109
  6. FUROSEMIDE [Concomitant]
     Route: 065
  7. ALBUTEROL [Concomitant]
     Route: 065
  8. ISOSORBIDE MONONITRATE [Concomitant]
     Route: 065
  9. CLOPIDOGREL BISULFATE [Concomitant]
     Route: 065
  10. DILTIAZEM HYDROCHLORIDE [Concomitant]
     Indication: ANGINA PECTORIS
     Route: 065
  11. GLICLAZIDE [Concomitant]
     Indication: DIABETES MELLITUS
     Route: 065
     Dates: start: 20050109
  12. IPRATROPIUM BROMIDE [Concomitant]
     Route: 065
  13. ASPIRIN [Concomitant]
     Route: 065

REACTIONS (4)
  - CHEST PAIN [None]
  - DYSPNOEA [None]
  - RENAL FAILURE ACUTE [None]
  - RHABDOMYOLYSIS [None]
